FAERS Safety Report 14025070 (Version 4)
Quarter: 2021Q4

REPORT INFORMATION
  Report Type: Spontaneous
  Country: AT (occurrence: AT)
  Receive Date: 20170929
  Receipt Date: 20211224
  Transmission Date: 20220303
  Serious: Yes (Death, Other)
  Sender: FDA-Public Use
  Company Number: AT-ALEXION PHARMACEUTICALS INC.-A201710787

PATIENT
  Age: 4 Month
  Sex: Male

DRUGS (15)
  1. STRENSIQ [Suspect]
     Active Substance: ASFOTASE ALFA
     Indication: Hypophosphatasia
     Dosage: 1 MG/KG, QD
     Route: 065
     Dates: start: 20170424
  2. STRENSIQ [Suspect]
     Active Substance: ASFOTASE ALFA
     Dosage: 2 MG/KG, TID
     Route: 065
  3. STRENSIQ [Suspect]
     Active Substance: ASFOTASE ALFA
     Dosage: 1.5 MG/KG, QD
     Route: 065
  4. STRENSIQ [Suspect]
     Active Substance: ASFOTASE ALFA
     Dosage: 2 MG/KG, UNK
     Route: 065
  5. STRENSIQ [Suspect]
     Active Substance: ASFOTASE ALFA
     Dosage: 1 MG/KG, SIX TIMES/WEEK
     Route: 058
  6. PYRIDOXINE HYDROCHLORIDE [Concomitant]
     Active Substance: PYRIDOXINE HYDROCHLORIDE
     Indication: Cerebral atrophy
     Dosage: 50 MG, SINGLE
     Route: 030
  7. PYRIDOXINE HYDROCHLORIDE [Concomitant]
     Active Substance: PYRIDOXINE HYDROCHLORIDE
     Indication: Neurological decompensation
     Dosage: 12.5 MG, SINGLE
     Route: 030
  8. PYRIDOXINE HYDROCHLORIDE [Concomitant]
     Active Substance: PYRIDOXINE HYDROCHLORIDE
     Indication: Dyskinesia
     Dosage: 5 MG, QD
     Route: 048
  9. PYRIDOXINE HYDROCHLORIDE [Concomitant]
     Active Substance: PYRIDOXINE HYDROCHLORIDE
     Dosage: 40 MG/KG, QD
     Route: 042
  10. PYRIDOXINE HYDROCHLORIDE [Concomitant]
     Active Substance: PYRIDOXINE HYDROCHLORIDE
     Dosage: 30 MG/KG, QD
     Route: 065
  11. PYRIDOXAL PHOSPHATE ANHYDROUS [Concomitant]
     Active Substance: PYRIDOXAL PHOSPHATE ANHYDROUS
     Indication: Neurological decompensation
     Dosage: 40 MG/KG, QD
     Route: 048
  12. CAFFEINE CITRATE [Concomitant]
     Active Substance: CAFFEINE CITRATE
     Indication: Extubation
     Dosage: HIGH-DOSE
     Route: 065
  13. DOXAPRAM [Concomitant]
     Active Substance: DOXAPRAM
     Indication: Extubation
     Dosage: UNK
     Route: 065
  14. LEUCOVORIN CALCIUM [Concomitant]
     Active Substance: LEUCOVORIN CALCIUM
     Indication: Mineral metabolism disorder
     Dosage: 3 MG/KG, QD
     Route: 065
  15. MAGNESIUM GLUCONICUM [Concomitant]
     Indication: Mineral metabolism disorder
     Dosage: 700-2100 MG/DAY
     Route: 065

REACTIONS (5)
  - Cerebral atrophy [Fatal]
  - Respiratory failure [Fatal]
  - Neurological decompensation [Fatal]
  - Encephalopathy [Fatal]
  - Blood alkaline phosphatase increased [Fatal]

NARRATIVE: CASE EVENT DATE: 20170824
